FAERS Safety Report 5680244-1 (Version None)
Quarter: 2008Q1

REPORT INFORMATION
  Report Type: 
  Country: None (occurrence: None)
  Receive Date: 20080326
  Receipt Date: 20080319
  Transmission Date: 20080703
  Serious: Yes (Other)
  Sender: FDA-Public Use
  Company Number: PHEH2008US02932

PATIENT
  Sex: Male

DRUGS (1)
  1. TEKTURNA [Suspect]

REACTIONS (5)
  - ASTHENIA [None]
  - DYSPNOEA [None]
  - SWELLING FACE [None]
  - TONGUE OEDEMA [None]
  - WEIGHT DECREASED [None]
